FAERS Safety Report 5920171-5 (Version None)
Quarter: 2008Q4

REPORT INFORMATION
  Report Type: 
  Country: None (occurrence: None)
  Receive Date: 20081015
  Receipt Date: 20081015
  Transmission Date: 20090506
  Serious: Yes (Other)
  Sender: FDA-Public Use
  Company Number: None

PATIENT
  Age: 62 Year
  Sex: Female
  Weight: 74.8435 kg

DRUGS (1)
  1. AMOXICILLIN [Suspect]
     Dosage: 2 TWICE A DAY
     Dates: start: 20081006, end: 20081014

REACTIONS (2)
  - ABDOMINAL PAIN UPPER [None]
  - GASTRIC DISORDER [None]
